FAERS Safety Report 5521545-7 (Version None)
Quarter: 2007Q4

REPORT INFORMATION
  Report Type: 
  Country: None (occurrence: None)
  Receive Date: 20071119
  Receipt Date: 20071119
  Transmission Date: 20080405
  Serious: Yes (Hospitalization)
  Sender: FDA-Public Use
  Company Number: None

PATIENT
  Age: 51 Year
  Sex: Female
  Weight: 47.6 kg

DRUGS (2)
  1. CETUXIMAB [Suspect]
     Indication: NON-SMALL CELL LUNG CANCER
     Dosage: 250MG/M2 QWEEK IV
     Route: 042
     Dates: start: 20071107
  2. PEMETREXED [Suspect]
     Dosage: 500MG/M2 Q21 DAYS IV
     Route: 042
     Dates: start: 20071031

REACTIONS (4)
  - ERYTHEMA [None]
  - LOCALISED INFECTION [None]
  - PAIN IN EXTREMITY [None]
  - PURULENCE [None]
